FAERS Safety Report 4783520-X (Version None)
Quarter: 2005Q3

REPORT INFORMATION
  Report Type: 
  Country: None (occurrence: None)
  Receive Date: 20050914
  Receipt Date: 20040722
  Transmission Date: 20060218
  Serious: Yes (Hospitalization)
  Sender: FDA-Public Use
  Company Number: 163-20785-04070574

PATIENT
  Age: 86 Year
  Sex: Female

DRUGS (9)
  1. THALOMID [Suspect]
     Indication: MYELODYSPLASTIC SYNDROME
     Dosage: 50 MG, QD, ORAL
     Route: 048
     Dates: start: 20040501, end: 20040721
  2. PROCRIT [Suspect]
     Indication: MYELODYSPLASTIC SYNDROME
     Dosage: 60,000 UNITS Q WEEK, SUBCUTANEOUS
     Route: 058
     Dates: start: 20040301, end: 20040721
  3. PROPRANOLOL [Concomitant]
  4. LASIX [Concomitant]
  5. PREDNISONE [Concomitant]
  6. MOTRIN [Concomitant]
  7. PACKED RED BLOOD CELLS (RED BLOOD CELLS) [Concomitant]
  8. VANTIN [Concomitant]
  9. DOXYCYCLINE [Concomitant]

REACTIONS (6)
  - BRAIN NATRIURETIC PEPTIDE INCREASED [None]
  - CHEST DISCOMFORT [None]
  - COUGH [None]
  - DYSPNOEA EXERTIONAL [None]
  - LUNG INFILTRATION [None]
  - ORTHOPNOEA [None]
